FAERS Safety Report 4365005-8 (Version None)
Quarter: 2004Q2

REPORT INFORMATION
  Report Type: 
  Country: None (occurrence: None)
  Receive Date: 20040521
  Receipt Date: 20040430
  Transmission Date: 20050107
  Serious: Yes (Life-Threatening, Hospitalization)
  Sender: FDA-Public Use
  Company Number: EWC040539084

PATIENT
  Age: 36 Year
  Sex: Male
  Weight: 55 kg

DRUGS (3)
  1. XIGRIS [Suspect]
     Indication: SEPSIS
     Dosage: 24 UG/KG/HR
     Dates: start: 20040422, end: 20040425
  2. MEROPENEM [Concomitant]
  3. ZOSYN [Concomitant]

REACTIONS (1)
  - HAEMORRHAGE INTRACRANIAL [None]
